FAERS Safety Report 4864546-4 (Version None)
Quarter: 2005Q4

REPORT INFORMATION
  Report Type: 
  Country: None (occurrence: None)
  Receive Date: 20051222
  Receipt Date: 20051219
  Transmission Date: 20060501
  Serious: Yes (Other)
  Sender: FDA-Public Use
  Company Number: US-BRISTOL-MYERS SQUIBB COMPANY-13222120

PATIENT
  Age: 49 Year
  Sex: Female
  Weight: 66 kg

DRUGS (5)
  1. ERBITUX [Suspect]
     Indication: COLORECTAL CANCER RECURRENT
     Dosage: LOAD DOSE 680 MG ON 08-DEC-05, 15-DEC-05: REC'D 420 MG.  PRODUCT STRENGTH: 50 MG/100 ML.
     Route: 042
     Dates: start: 20051208, end: 20051208
  2. IRINOTECAN HCL [Concomitant]
  3. BENADRYL [Concomitant]
     Indication: PREMEDICATION
     Route: 042
     Dates: start: 20051201, end: 20051201
  4. ALOXI [Concomitant]
     Indication: PREMEDICATION
     Route: 042
     Dates: start: 20051201, end: 20051201
  5. DECADRON [Concomitant]
     Indication: PREMEDICATION
     Route: 042
     Dates: start: 20051201, end: 20051201

REACTIONS (4)
  - PAIN OF SKIN [None]
  - RASH [None]
  - SKIN HAEMORRHAGE [None]
  - SKIN SWELLING [None]
